FAERS Safety Report 9802190 (Version 1)
Quarter: 2014Q1

REPORT INFORMATION
  Report Type: Spontaneous
  Country: BR (occurrence: BR)
  Receive Date: 20140107
  Receipt Date: 20140107
  Transmission Date: 20141002
  Serious: Yes (Hospitalization)
  Sender: FDA-Public Use
  Company Number: BR-ASTRAZENECA-2014SE00297

PATIENT
  Age: 1999 Week
  Sex: Female

DRUGS (1)
  1. NEXIUM [Suspect]
     Indication: GASTRITIS PROPHYLAXIS
     Route: 048
     Dates: start: 2013

REACTIONS (2)
  - Gastric disorder [Recovered/Resolved]
  - Malaise [Recovered/Resolved]
